FAERS Safety Report 10775993 (Version 1)
Quarter: 2015Q1

REPORT INFORMATION
  Report Type: Spontaneous
  Country: CA (occurrence: CA)
  Receive Date: 20150209
  Receipt Date: 20150209
  Transmission Date: 20150721
  Serious: Yes (Hospitalization)
  Sender: FDA-Public Use
  Company Number: CA-GALDERMA-CA15000379

PATIENT
  Age: 11 Year
  Sex: Female

DRUGS (1)
  1. TACTUO [Suspect]
     Active Substance: ADAPALENE
     Indication: ACNE
     Dosage: 0.1%-2.5%
     Route: 061

REACTIONS (3)
  - Swelling face [Recovering/Resolving]
  - Loss of consciousness [Recovering/Resolving]
  - Erythema [Recovering/Resolving]
